FAERS Safety Report 15571149 (Version 1)
Quarter: 2018Q4

REPORT INFORMATION
  Report Type: Spontaneous
  Country: US (occurrence: US)
  Receive Date: 20181031
  Receipt Date: 20181031
  Transmission Date: 20190205
  Serious: No
  Sender: FDA-Public Use
  Company Number: US-LANNETT COMPANY, INC.-US-2018LAN001089

PATIENT
  Sex: Female

DRUGS (1)
  1. PREDNISOLONE. [Suspect]
     Active Substance: PREDNISOLONE
     Indication: INFLAMMATION
     Dosage: UNK
     Route: 065

REACTIONS (2)
  - Urticaria [Unknown]
  - Self-medication [Unknown]
